FAERS Safety Report 6747230-1 (Version None)
Quarter: 2010Q2

REPORT INFORMATION
  Report Type: 
  Country: None (occurrence: None)
  Receive Date: 20100528
  Receipt Date: 20100520
  Transmission Date: 20101027
  Serious: Yes (Other)
  Sender: FDA-Public Use
  Company Number: US-JNJFOC-20100508232

PATIENT
  Age: 74 Year
  Sex: Female
  Weight: 72.58 kg

DRUGS (3)
  1. EXTRA STRENGTH TYLENOL [Suspect]
     Indication: HEADACHE
     Dosage: ABOUT 4-6 DOSES PER DAY
     Route: 048
  2. EXTRA STRENGTH TYLENOL [Suspect]
     Indication: PYREXIA
     Dosage: ABOUT 4-6 DOSES PER DAY
     Route: 048
  3. TEKTURNA [Concomitant]
     Indication: HYPERTENSION

REACTIONS (4)
  - BACTERIAL INFECTION [None]
  - COUGH [None]
  - PRODUCT QUALITY ISSUE [None]
  - PYREXIA [None]
